FAERS Safety Report 9393684 (Version 1)
Quarter: 2013Q3

REPORT INFORMATION
  Report Type: Spontaneous
  Country: ES (occurrence: ES)
  Receive Date: 20130710
  Receipt Date: 20130710
  Transmission Date: 20140515
  Serious: Yes (Other)
  Sender: FDA-Public Use
  Company Number: ES-BRISTOL-MYERS SQUIBB COMPANY-19066521

PATIENT
  Age: 47 Year
  Sex: Male

DRUGS (6)
  1. REYATAZ [Suspect]
     Route: 048
     Dates: start: 2010, end: 20130624
  2. ZYPREXA [Suspect]
     Route: 048
  3. TRUVADA [Concomitant]
     Indication: HIV INFECTION
     Dosage: 1 DF = 200 MG/245 MG
     Route: 048
  4. NORVIR [Concomitant]
     Indication: HIV INFECTION
     Route: 048
  5. DEPAKINE [Concomitant]
     Route: 048
  6. PAROXETINE [Concomitant]
     Route: 048

REACTIONS (1)
  - Gynaecomastia [Unknown]
